FAERS Safety Report 5932394-X (Version None)
Quarter: 2008Q4

REPORT INFORMATION
  Report Type: 
  Country: None (occurrence: None)
  Receive Date: 20081023
  Receipt Date: 20060327
  Transmission Date: 20090506
  Serious: Yes (Other)
  Sender: FDA-Public Use
  Company Number: 2006AL001968

PATIENT
  Age: 69 Year
  Sex: Male

DRUGS (10)
  1. SULFATRIM PEDIATRIC [Suspect]
     Indication: URINARY TRACT INFECTION
     Dosage: 200 MG; BID; PO
     Route: 048
     Dates: start: 20060216, end: 20060220
  2. NITRAZEPAM [Concomitant]
  3. ATENOLOL [Concomitant]
  4. CROMOGLYCIC ACID [Concomitant]
  5. AMLODIPINE [Concomitant]
  6. OMEPRAZOLE [Concomitant]
  7. CELECOXIB [Concomitant]
  8. CO-DYDRAMOL [Concomitant]
  9. ATORVASTATIN CALCIUM [Concomitant]
  10. TRANSVASIN [Concomitant]

REACTIONS (4)
  - BLISTER [None]
  - ERYTHEMA [None]
  - LIP SWELLING [None]
  - MOUTH ULCERATION [None]
